FAERS Safety Report 8499204 (Version 2)
Quarter: 2013Q3

REPORT INFORMATION
  Report Type: Spontaneous
  Country: JP (occurrence: JP)
  Receive Date: 20120409
  Receipt Date: 20130813
  Transmission Date: 20140515
  Serious: Yes (Other)
  Sender: FDA-Public Use
  Company Number: PHHY2012JP029436

PATIENT
  Sex: 0

DRUGS (1)
  1. ZOMETA [Suspect]
     Route: 041

REACTIONS (1)
  - Visual acuity reduced [Unknown]
